FAERS Safety Report 13365513 (Version 1)
Quarter: 2017Q1

REPORT INFORMATION
  Report Type: Spontaneous
  Country: US (occurrence: US)
  Receive Date: 20170323
  Receipt Date: 20170323
  Transmission Date: 20170429
  Serious: No
  Sender: FDA-Public Use
  Company Number: US-WARNER CHILCOTT-2016-000738

PATIENT
  Sex: Female
  Weight: 56.69 kg

DRUGS (1)
  1. ESTRACE [Suspect]
     Active Substance: ESTRADIOL
     Indication: DYSPAREUNIA
     Dosage: 1 G, UNKNOWN
     Route: 067
     Dates: start: 2011

REACTIONS (2)
  - Application site discharge [Not Recovered/Not Resolved]
  - Underdose [Unknown]
